FAERS Safety Report 8343152-3 (Version None)
Quarter: 2012Q2

REPORT INFORMATION
  Report Type: 
  Country: None (occurrence: None)
  Receive Date: 20120508
  Receipt Date: 20120502
  Transmission Date: 20120825
  Serious: Yes (Death)
  Sender: FDA-Public Use
  Company Number: FR-PFIZER INC-2012107837

PATIENT
  Age: 44 Year
  Sex: Male

DRUGS (3)
  1. EFFEXOR XR [Suspect]
     Indication: DEPRESSION
     Dosage: 37.5 MG, 1X/DAY
     Dates: start: 20120301, end: 20120301
  2. XANAX [Concomitant]
     Indication: SLEEP DISORDER
     Dosage: 1 DF, 1X/DAY
  3. VENLAFAXINE HCL [Suspect]
     Dosage: 75 MG, 1X/DAY
     Dates: start: 20120401

REACTIONS (1)
  - COMPLETED SUICIDE [None]
